FAERS Safety Report 23422394 (Version 1)
Quarter: 2024Q1

REPORT INFORMATION
  Report Type: Spontaneous
  Country: US (occurrence: None)
  Receive Date: 20240118
  Receipt Date: 20240118
  Transmission Date: 20240410
  Serious: Yes (Life-Threatening, Hospitalization)
  Sender: FDA-Public Use
  Company Number: None

PATIENT
  Age: 21 Year
  Sex: Male
  Weight: 70 kg

DRUGS (1)
  1. CLOZAPINE [Suspect]
     Active Substance: CLOZAPINE
     Dates: start: 20231122, end: 20231208

REACTIONS (8)
  - Tremor [None]
  - Hyperhidrosis [None]
  - Myalgia [None]
  - Pyrexia [None]
  - Myocarditis [None]
  - Chest discomfort [None]
  - Troponin increased [None]
  - Therapy cessation [None]

NARRATIVE: CASE EVENT DATE: 20231208
